FAERS Safety Report 7740312-7 (Version None)
Quarter: 2011Q3

REPORT INFORMATION
  Report Type: 
  Country: None (occurrence: None)
  Receive Date: 20110909
  Receipt Date: 20110831
  Transmission Date: 20111222
  Serious: Yes (Hospitalization)
  Sender: FDA-Public Use
  Company Number: FR-JNJFOC-20110900756

PATIENT
  Sex: Female

DRUGS (14)
  1. FORLAX [Concomitant]
  2. TANAKAN [Concomitant]
  3. FERROUS SULFATE TAB [Concomitant]
  4. FLAGYL [Concomitant]
  5. LORAZEPAM [Concomitant]
  6. XARELTO [Suspect]
     Indication: KNEE ARTHROPLASTY
     Route: 048
     Dates: start: 20110805, end: 20110808
  7. CEFAZOLIN [Concomitant]
     Dates: start: 20110805, end: 20110805
  8. TRAMADOL HCL [Concomitant]
  9. RABEPRAZOLE SODIUM [Suspect]
     Indication: PRODUCT USED FOR UNKNOWN INDICATION
     Route: 048
     Dates: start: 20110805
  10. ACETAMINOPHEN [Concomitant]
     Dates: start: 20110805
  11. XARELTO [Suspect]
     Indication: THROMBOSIS PROPHYLAXIS
     Route: 048
     Dates: start: 20110805, end: 20110808
  12. MORPHINE [Suspect]
     Indication: PAIN
     Route: 042
  13. INDAPAMIDE [Concomitant]
  14. ACETAMINOPHEN [Concomitant]

REACTIONS (1)
  - DEEP VEIN THROMBOSIS [None]
